FAERS Safety Report 25424804 (Version 2)
Quarter: 2025Q2

REPORT INFORMATION
  Report Type: Spontaneous
  Country: SE (occurrence: SE)
  Receive Date: 20250611
  Receipt Date: 20250619
  Transmission Date: 20250717
  Serious: No
  Sender: OTSUKA
  Company Number: SE-OTSUKA-2024_001308

PATIENT
  Age: 9 Year
  Sex: Male

DRUGS (4)
  1. ARIPIPRAZOLE [Suspect]
     Active Substance: ARIPIPRAZOLE
     Indication: Psychotic disorder
     Dosage: 5 MG, QD
     Route: 065
  2. RISPERIDONE [Concomitant]
     Active Substance: RISPERIDONE
     Indication: Psychotic disorder
     Route: 065
  3. RISPERIDONE [Concomitant]
     Active Substance: RISPERIDONE
     Route: 065
  4. RISPERIDONE [Concomitant]
     Active Substance: RISPERIDONE
     Route: 065

REACTIONS (2)
  - Product use in unapproved indication [Unknown]
  - Treatment delayed [Unknown]
